FAERS Safety Report 4910944-X (Version None)
Quarter: 2006Q1

REPORT INFORMATION
  Report Type: 
  Country: None (occurrence: None)
  Receive Date: 20060214
  Receipt Date: 20051110
  Transmission Date: 20060701
  Serious: Yes (Hospitalization, Disabling, Other)
  Sender: FDA-Public Use
  Company Number: US-MERCK-0511USA01896

PATIENT
  Age: 53 Year
  Sex: Male
  Weight: 94 kg

DRUGS (10)
  1. VIOXX [Suspect]
     Indication: ARTHRALGIA
     Route: 048
     Dates: start: 20020701, end: 20021206
  2. HYZAAR [Concomitant]
     Indication: HYPERTENSION
     Route: 065
     Dates: start: 20021201, end: 20050101
  3. TOPROL-XL [Concomitant]
     Indication: HYPERTENSION
     Route: 065
     Dates: start: 19990101
  4. ALLEGRA [Concomitant]
     Indication: HYPERSENSITIVITY
     Route: 065
  5. ASPIRIN [Concomitant]
     Indication: PROPHYLAXIS
     Route: 065
     Dates: start: 19950101, end: 20020101
  6. ALLOPURINOL [Concomitant]
     Indication: GOUT
     Route: 065
  7. FLONASE [Concomitant]
     Indication: HYPERSENSITIVITY
     Route: 065
  8. NEURONTIN [Concomitant]
     Indication: PAIN
     Route: 065
  9. OXYCONTIN [Concomitant]
     Indication: PAIN
     Route: 065
  10. ALBUTEROL [Concomitant]
     Indication: ASTHMA
     Route: 065

REACTIONS (6)
  - ANXIETY [None]
  - CEREBROVASCULAR ACCIDENT [None]
  - DEPRESSION [None]
  - OBESITY [None]
  - SLEEP APNOEA SYNDROME [None]
  - UPPER RESPIRATORY TRACT INFECTION [None]
